FAERS Safety Report 18770952 (Version 2)
Quarter: 2021Q1

REPORT INFORMATION
  Report Type: Report from Study
  Country: US (occurrence: US)
  Receive Date: 20210121
  Receipt Date: 20210128
  Transmission Date: 20210419
  Serious: Yes (Other)
  Sender: FDA-Public Use
  Company Number: US-JNJFOC-20210117212

PATIENT
  Sex: Female
  Weight: 69.1 kg

DRUGS (1)
  1. EPOPROSTENOL SODIUM. [Suspect]
     Active Substance: EPOPROSTENOL SODIUM
     Indication: PULMONARY HYPERTENSION
     Route: 042

REACTIONS (4)
  - Hangover [Unknown]
  - Oxygen saturation decreased [Unknown]
  - Hypoxia [Unknown]
  - Swelling face [Unknown]
